FAERS Safety Report 9095266 (Version 2)
Quarter: 2013Q1

REPORT INFORMATION
  Report Type: Spontaneous
  Country: IT (occurrence: None)
  Receive Date: 20130122
  Receipt Date: 20130215
  Transmission Date: 20140127
  Serious: Yes (Hospitalization)
  Sender: FDA-Public Use
  Company Number: IT-2013-0023

PATIENT
  Age: 77 Year
  Sex: Male

DRUGS (4)
  1. NAVELBINE (VINORELBINE TARTRATE) INFUSION [Suspect]
     Indication: PROSTATE CANCER
     Dosage: CYCLICAL
     Route: 042
     Dates: start: 20120801, end: 20120930
  2. CITALOPRAM HYDROCHLORIDE [Concomitant]
  3. MODURETIC (AMILORIDE HYDROCHLORIDE, HYDROCHLOROTHIAZIDE) [Concomitant]
  4. CARDIOASPIRIN (ACETYLSALICYLIC ACID) [Concomitant]

REACTIONS (4)
  - Blood creatinine increased [None]
  - Blood lactate dehydrogenase [None]
  - Anaemia [None]
  - Back pain [None]
